FAERS Safety Report 22153310 (Version 4)
Quarter: 2023Q4

REPORT INFORMATION
  Report Type: Spontaneous
  Country: JP (occurrence: JP)
  Receive Date: 20230329
  Receipt Date: 20231123
  Transmission Date: 20240110
  Serious: Yes (Life-Threatening, Hospitalization, Other)
  Sender: FDA-Public Use
  Company Number: JP-PFIZER INC-PV202300057124

PATIENT
  Age: 80 Year
  Sex: Female

DRUGS (3)
  1. ETANERCEPT [Suspect]
     Active Substance: ETANERCEPT
     Indication: Rheumatoid arthritis
     Dosage: 25 MG, WEEKLY,AT THE BEGINNING
     Route: 065
  2. ETANERCEPT [Suspect]
     Active Substance: ETANERCEPT
     Dosage: 50 MG, WEEKLY, LATER
     Route: 065
  3. METHOTREXATE [Concomitant]
     Active Substance: METHOTREXATE
     Indication: Rheumatoid arthritis
     Dosage: 8 MG, WEEKLY
     Route: 065

REACTIONS (5)
  - Retroperitoneal fibrosis [Recovering/Resolving]
  - Immunoglobulin G4 related disease [Recovering/Resolving]
  - Hydronephrosis [Recovering/Resolving]
  - Renal failure [Unknown]
  - Paradoxical drug reaction [Recovering/Resolving]
